FAERS Safety Report 7729430-7 (Version None)
Quarter: 2011Q3

REPORT INFORMATION
  Report Type: 
  Country: None (occurrence: None)
  Receive Date: 20110906
  Receipt Date: 20110824
  Transmission Date: 20111222
  Serious: Yes (Other)
  Sender: FDA-Public Use
  Company Number: US-JNJFOC-20110811131

PATIENT
  Sex: Female
  Weight: 63.96 kg

DRUGS (11)
  1. ZETIA [Concomitant]
     Indication: BLOOD CHOLESTEROL
     Route: 048
  2. WELLBUTRIN [Concomitant]
     Indication: CRYING
     Route: 048
  3. REMICADE [Suspect]
     Indication: RHEUMATOID ARTHRITIS
     Route: 042
     Dates: start: 20080801
  4. TOPAMAX [Concomitant]
     Indication: MIGRAINE
     Dosage: 125MG/TABLET/25MG/DAILY/ORAL
     Route: 048
  5. FOLIC ACID [Concomitant]
     Indication: NUTRITIONAL SUPPORT
     Route: 048
  6. FISH OIL [Concomitant]
     Indication: RHINITIS ALLERGIC
     Route: 048
  7. NEXIUM [Concomitant]
     Indication: GASTROOESOPHAGEAL REFLUX DISEASE
     Route: 048
  8. VITAMIN D [Concomitant]
     Indication: NUTRITIONAL SUPPORT
     Route: 048
  9. TRAMADOL HYDROCHLORIDE [Suspect]
     Indication: PAIN
     Route: 048
  10. ZYRTEC [Concomitant]
     Indication: RHINITIS ALLERGIC
     Route: 048
  11. METHOTREXATE [Concomitant]
     Indication: RHEUMATOID ARTHRITIS
     Dosage: 10MG/TABLET/2.5MG/WEEKLY/ORAL
     Route: 048

REACTIONS (10)
  - CHEST PAIN [None]
  - TRIGEMINAL NERVE DISORDER [None]
  - MUSCULOSKELETAL STIFFNESS [None]
  - MUSCULAR WEAKNESS [None]
  - DIZZINESS [None]
  - HEADACHE [None]
  - JOINT SWELLING [None]
  - NECK PAIN [None]
  - ARTHRALGIA [None]
  - SOMNOLENCE [None]
